FAERS Safety Report 21724440 (Version 1)
Quarter: 2022Q4

REPORT INFORMATION
  Report Type: Spontaneous
  Country: CA (occurrence: CA)
  Receive Date: 20221213
  Receipt Date: 20221213
  Transmission Date: 20230112
  Serious: Yes (Hospitalization)
  Sender: FDA-Public Use
  Company Number: CA-BAYER-2022A168275

PATIENT
  Age: 82 Year
  Sex: Male
  Weight: 69 kg

DRUGS (11)
  1. XARELTO [Suspect]
     Active Substance: RIVAROXABAN
     Indication: Atrial fibrillation
     Dosage: 15 MG, QD
     Route: 048
  2. CLOPIDOGREL [Suspect]
     Active Substance: CLOPIDOGREL BISULFATE
     Indication: Peripheral vascular disorder
     Dosage: 75 MG, QD
     Route: 048
  3. CLOPIDOGREL [Suspect]
     Active Substance: CLOPIDOGREL BISULFATE
     Indication: Arteriosclerosis
  4. ASPIRIN [Suspect]
     Active Substance: ASPIRIN
     Dosage: 80 MG, QD
  5. ATORVASTATIN [Concomitant]
     Active Substance: ATORVASTATIN
  6. FERROUS SULFATE [Concomitant]
     Active Substance: FERROUS SULFATE
  7. BISOPROLOL [Concomitant]
     Active Substance: BISOPROLOL
  8. VENLAFAXINE HYDROCHLORIDE [Concomitant]
     Active Substance: VENLAFAXINE HYDROCHLORIDE
  9. RANITIDINE [Concomitant]
     Active Substance: RANITIDINE
  10. FUROSEMIDE [Concomitant]
     Active Substance: FUROSEMIDE
  11. TAMSULOSIN [Concomitant]
     Active Substance: TAMSULOSIN

REACTIONS (7)
  - Dizziness [Unknown]
  - Asthenia [Unknown]
  - Rectal haemorrhage [Unknown]
  - Haemoglobin decreased [Unknown]
  - Lower gastrointestinal haemorrhage [Unknown]
  - Angiodysplasia [Unknown]
  - Diverticulum [Unknown]
